FAERS Safety Report 9157450 (Version 1)
Quarter: 2013Q1

REPORT INFORMATION
  Report Type: Spontaneous
  Country: US (occurrence: None)
  Receive Date: 20130308
  Receipt Date: 20130308
  Transmission Date: 20140127
  Serious: Yes (Other)
  Sender: FDA-Public Use
  Company Number: None

PATIENT
  Age: 81 Year
  Sex: 0
  Weight: 72.58 kg

DRUGS (1)
  1. LIPITOR [Suspect]
     Indication: BLOOD CHOLESTEROL
     Dosage: ONE PILL DAILY MOUTH
     Route: 048
     Dates: start: 201201, end: 201203

REACTIONS (2)
  - Aphasia [None]
  - Dementia [None]
